FAERS Safety Report 21845836 (Version 2)
Quarter: 2023Q1

REPORT INFORMATION
  Report Type: Report from Study
  Country: US (occurrence: US)
  Receive Date: 20230111
  Receipt Date: 20230113
  Transmission Date: 20230418
  Serious: Yes (Hospitalization)
  Sender: FDA-Public Use
  Company Number: US-ABBVIE-4265250

PATIENT
  Age: 66 Year
  Sex: Female
  Weight: 60.7 kg

DRUGS (2)
  1. ADALIMUMAB [Suspect]
     Active Substance: ADALIMUMAB
     Indication: Rheumatoid arthritis
     Route: 058
     Dates: start: 2022, end: 202209
  2. ADALIMUMAB [Suspect]
     Active Substance: ADALIMUMAB
     Route: 058
     Dates: start: 2022, end: 2022

REACTIONS (9)
  - Histoplasmosis [Recovering/Resolving]
  - Cough [Recovering/Resolving]
  - Hypotension [Recovered/Resolved]
  - Body temperature increased [Unknown]
  - Chronic obstructive pulmonary disease [Unknown]
  - Hyperhidrosis [Recovered/Resolved]
  - Immune system disorder [Recovering/Resolving]
  - Rheumatoid arthritis [Not Recovered/Not Resolved]
  - Medication error [Recovered/Resolved]

NARRATIVE: CASE EVENT DATE: 20220601
